FAERS Safety Report 6122473-9 (Version None)
Quarter: 2009Q1

REPORT INFORMATION
  Report Type: 
  Country: None (occurrence: None)
  Receive Date: 20090318
  Receipt Date: 20090106
  Transmission Date: 20090719
  Serious: No
  Sender: FDA-Public Use
  Company Number: US-ASTRAZENECA-2008UW24670

PATIENT
  Age: 35 Year
  Sex: Female
  Weight: 61.2 kg

DRUGS (6)
  1. SYMBICORT [Suspect]
     Indication: ASTHMA
     Dosage: 160/4.5 MCG, 2 PUFFS TWICE DAILY
     Route: 055
     Dates: end: 20081028
  2. SYMBICORT [Suspect]
     Indication: RHINITIS ALLERGIC
     Dosage: 160/4.5 MCG, 2 PUFFS TWICE DAILY
     Route: 055
     Dates: end: 20081028
  3. SYMBICORT [Suspect]
     Dosage: 160/4.5 MCG, 2 PUFFS TWICE DAILY
     Route: 055
     Dates: start: 20081104
  4. SYMBICORT [Suspect]
     Dosage: 160/4.5 MCG, 2 PUFFS TWICE DAILY
     Route: 055
     Dates: start: 20081104
  5. KLONOPIN [Concomitant]
  6. EFFEXOR [Concomitant]

REACTIONS (3)
  - ARTHRALGIA [None]
  - ASTHMA [None]
  - FATIGUE [None]
